FAERS Safety Report 8740385 (Version 3)
Quarter: 2013Q4

REPORT INFORMATION
  Report Type: Spontaneous
  Country: US (occurrence: US)
  Receive Date: 20120823
  Receipt Date: 20131101
  Transmission Date: 20140711
  Serious: No
  Sender: FDA-Public Use
  Company Number: US-009507513-1208USA004733

PATIENT
  Age: 46 Year
  Sex: Female

DRUGS (1)
  1. SAPHRIS [Suspect]
     Dosage: 10 MG, QD
     Route: 060
     Dates: start: 201203, end: 20120719

REACTIONS (5)
  - Decreased appetite [Recovering/Resolving]
  - Acne [Recovering/Resolving]
  - Weight decreased [Recovering/Resolving]
  - Restlessness [Recovering/Resolving]
  - Inappropriate schedule of drug administration [Recovering/Resolving]
